FAERS Safety Report 7909535-8 (Version None)
Quarter: 2011Q4

REPORT INFORMATION
  Report Type: 
  Country: None (occurrence: None)
  Receive Date: 20111111
  Receipt Date: 20111102
  Transmission Date: 20120403
  Serious: Yes (Hospitalization)
  Sender: FDA-Public Use
  Company Number: US-BAYER-2011-041015

PATIENT
  Age: 16 Year
  Sex: Female

DRUGS (3)
  1. YASMIN [Suspect]
     Indication: ACNE
     Dosage: UNK
     Dates: start: 20060101, end: 20070101
  2. ACCUTANE [Concomitant]
  3. YAZ [Suspect]
     Indication: ACNE
     Dosage: UNK
     Dates: start: 20070101, end: 20080201

REACTIONS (9)
  - EMOTIONAL DISTRESS [None]
  - PELVIC VENOUS THROMBOSIS [None]
  - GENERAL PHYSICAL HEALTH DETERIORATION [None]
  - OEDEMA PERIPHERAL [None]
  - HAEMATOMA [None]
  - INJURY [None]
  - PAIN [None]
  - PAIN IN EXTREMITY [None]
  - ANXIETY [None]
